FAERS Safety Report 7768194-8 (Version None)
Quarter: 2011Q3

REPORT INFORMATION
  Report Type: 
  Country: None (occurrence: None)
  Receive Date: 20110922
  Receipt Date: 20110922
  Transmission Date: 20111222
  Serious: Yes (Hospitalization)
  Sender: FDA-Public Use
  Company Number: None

PATIENT
  Sex: Female

DRUGS (1)
  1. COPAXONE [Suspect]
     Indication: MULTIPLE SCLEROSIS
     Dosage: 20MG
     Route: 058
     Dates: start: 20101207, end: 20110912

REACTIONS (2)
  - REFUSAL OF TREATMENT BY PATIENT [None]
  - DYSPNOEA [None]
